FAERS Safety Report 13993456 (Version 1)
Quarter: 2017Q3

REPORT INFORMATION
  Report Type: Spontaneous
  Country: US (occurrence: US)
  Receive Date: 20170920
  Receipt Date: 20170920
  Transmission Date: 20171128
  Serious: No
  Sender: FDA-Public Use
  Company Number: US-TEVA-716645ACC

PATIENT

DRUGS (1)
  1. NAPROXEN DELAYED RELEASE [Suspect]
     Active Substance: NAPROXEN
     Indication: ARTHRITIS
     Dates: start: 20161023

REACTIONS (3)
  - Drug ineffective [Unknown]
  - Product physical issue [Unknown]
  - Product coating issue [None]

NARRATIVE: CASE EVENT DATE: 20161123
